FAERS Safety Report 24050337 (Version 2)
Quarter: 2024Q3

REPORT INFORMATION
  Report Type: Other
  Country: GB (occurrence: GB)
  Receive Date: 20240704
  Receipt Date: 20240816
  Transmission Date: 20241017
  Serious: Yes (Disabling)
  Sender: STRIDES
  Company Number: None

PATIENT
  Age: 89 Year
  Sex: Female
  Weight: 55 kg

DRUGS (15)
  1. MEMANTINE HYDROCHLORIDE [Suspect]
     Active Substance: MEMANTINE HYDROCHLORIDE
     Indication: Ill-defined disorder
     Dosage: 10 MILLIGRAM, QD (ONE TABLET EACH NIGHT TIME (FOR MEMORY) (WHITE ...)
     Route: 065
     Dates: start: 20231127
  2. MEMANTINE HYDROCHLORIDE [Suspect]
     Active Substance: MEMANTINE HYDROCHLORIDE
     Indication: Amnesia
  3. AMITRIPTYLINE [Suspect]
     Active Substance: AMITRIPTYLINE
     Indication: Ill-defined disorder
     Dosage: 2 DOSAGE FORM, QD (TAKE TWO TABLETS AT NIGHT AS DIRECTED (BLUE ROU...)
     Route: 065
     Dates: start: 20220516
  4. PRIMIDONE [Suspect]
     Active Substance: PRIMIDONE
     Indication: Ill-defined disorder
     Dosage: 0.5 DOSAGE FORM, QD (WEEK 1 AND 2: HALF A TABLET EACH DAY   WEEK 3 A...)
     Route: 048
     Dates: start: 20240416, end: 20240627
  5. DIHYDROCODEINE [Concomitant]
     Active Substance: DIHYDROCODEINE
     Indication: Ill-defined disorder
     Dosage: UNK, AT BED TIME (ONE OR TWO AT NIGHT (WHITE CAPSULE SHAPED DHC 6...)
     Route: 065
     Dates: start: 20220516
  6. POLYETHYLENE GLYCOL 3350\POTASSIUM CHLORIDE\SODIUM BICARBONATE\SODIUM [Concomitant]
     Active Substance: POLYETHYLENE GLYCOL 3350\POTASSIUM CHLORIDE\SODIUM BICARBONATE\SODIUM CHLORIDE
     Indication: Ill-defined disorder
     Dosage: UNK, QD (ONE OR TWO DAILY, ORANGE)
     Route: 065
     Dates: start: 20220516
  7. LEVOTHYROXINE [Concomitant]
     Active Substance: LEVOTHYROXINE\LEVOTHYROXINE SODIUM
     Indication: Ill-defined disorder
     Dosage: 75 MICROGRAM, QD (TAKE ONE TABLET EACH DAY (TOTAL 75MCG) (WHITE R...)
     Route: 065
     Dates: start: 20220516
  8. METFORMIN [Concomitant]
     Active Substance: METFORMIN HYDROCHLORIDE
     Indication: Ill-defined disorder
     Dosage: UNK, QD (ONE TABLET DAILY WITH BREAKFAST AND ONE WITH EV...)
     Route: 065
     Dates: start: 20220516
  9. Movelat [Concomitant]
     Indication: Ill-defined disorder
     Dosage: UNK, PRN (APPLY AS REQUIRED)
     Route: 065
     Dates: start: 20220516
  10. ACETAMINOPHEN [Concomitant]
     Active Substance: ACETAMINOPHEN
     Indication: Ill-defined disorder
     Dosage: 2 DOSAGE FORM, QID (TWO TO BE TAKEN FOUR TIMES DAILY WHEN REQUIRED)
     Route: 065
     Dates: start: 20220516
  11. POTASSIUM BICARBONATE\SODIUM ALGINATE [Concomitant]
     Active Substance: POTASSIUM BICARBONATE\SODIUM ALGINATE
     Indication: Ill-defined disorder
     Dosage: 1 DOSAGE FORM, QD (ONE TABLET WHEN REQUIRED)
     Route: 065
     Dates: start: 20220809
  12. DAPAGLIFLOZIN [Concomitant]
     Active Substance: DAPAGLIFLOZIN
     Indication: Ill-defined disorder
     Dosage: 1 DOSAGE FORM, QD (ONE TABLET DAILY (TO EXCRETE GLUCOSE IN URINE)(...)
     Route: 065
     Dates: start: 20230928
  13. DAPAGLIFLOZIN [Concomitant]
     Active Substance: DAPAGLIFLOZIN
     Indication: Glucose urine
  14. AMLODIPINE [Concomitant]
     Active Substance: AMLODIPINE BESYLATE
     Indication: Ill-defined disorder
     Dosage: 1 DOSAGE FORM, QD (ONE TABLET DAILY (TO LOWER BLOOD PRESSURE)(WHIT...)
     Route: 065
     Dates: start: 20240120
  15. AMLODIPINE [Concomitant]
     Active Substance: AMLODIPINE BESYLATE
     Indication: Blood pressure increased

REACTIONS (2)
  - Nausea [Unknown]
  - Dizziness [Unknown]

NARRATIVE: CASE EVENT DATE: 20240606
